FAERS Safety Report 19095184 (Version 2)
Quarter: 2021Q2

REPORT INFORMATION
  Report Type: Report from Study
  Country: None (occurrence: US)
  Receive Date: 20210406
  Receipt Date: 20210504
  Transmission Date: 20210717
  Serious: Yes (Hospitalization, Other)
  Sender: FDA-Public Use
  Company Number: US-ABBVIE-21K-163-3840719-00

PATIENT
  Age: 73 Year
  Sex: Female
  Weight: 68.1 kg

DRUGS (5)
  1. HUMIRA [Suspect]
     Active Substance: ADALIMUMAB
     Indication: PSORIATIC ARTHROPATHY
     Route: 058
     Dates: start: 20210421
  2. HUMIRA [Suspect]
     Active Substance: ADALIMUMAB
     Indication: RHEUMATOID ARTHRITIS
     Route: 058
     Dates: start: 2005, end: 202102
  3. METOPROLOL. [Concomitant]
     Active Substance: METOPROLOL
     Indication: HYPERTENSION
  4. PFIZER?BIONTECH COVID?19 VACCINE [Suspect]
     Active Substance: TOZINAMERAN
     Indication: COVID-19 IMMUNISATION
     Dosage: PFIZER
     Route: 030
     Dates: start: 202102, end: 202102
  5. PFIZER?BIONTECH COVID?19 VACCINE [Suspect]
     Active Substance: TOZINAMERAN
     Dosage: PFIZER
     Route: 030
     Dates: start: 20210227, end: 20210227

REACTIONS (16)
  - Echocardiogram abnormal [Unknown]
  - Thrombosis [Recovered/Resolved]
  - Oxygen saturation decreased [Recovering/Resolving]
  - Chest pain [Not Recovered/Not Resolved]
  - Coronary artery occlusion [Recovered/Resolved]
  - Hypotension [Recovering/Resolving]
  - Cough [Not Recovered/Not Resolved]
  - Cardiac stress test abnormal [Unknown]
  - Procedural complication [Unknown]
  - Skin discolouration [Recovered/Resolved]
  - Haemorrhage [Recovered/Resolved]
  - Breast pain [Recovering/Resolving]
  - Dyspnoea [Recovering/Resolving]
  - Fatigue [Recovering/Resolving]
  - Venous injury [Recovered/Resolved]
  - Blood glucose decreased [Recovering/Resolving]

NARRATIVE: CASE EVENT DATE: 2010
